FAERS Safety Report 7891453-5 (Version None)
Quarter: 2011Q4

REPORT INFORMATION
  Report Type: 
  Country: None (occurrence: None)
  Receive Date: 20111103
  Receipt Date: 20110803
  Transmission Date: 20120403
  Serious: No
  Sender: FDA-Public Use
  Company Number: US-AMGEN-USASP2011033694

PATIENT
  Sex: Female

DRUGS (7)
  1. TRIAMTERENE AND HYDROCHLOROTHIAZIDE [Concomitant]
     Dosage: UNK
  2. ENBREL [Suspect]
     Indication: PSORIASIS
     Dosage: 50 MG, 2 TIMES/WK
     Dates: start: 20110209
  3. DETROL LA [Concomitant]
     Dosage: UNK
  4. NITROFURANTOIN [Concomitant]
     Dosage: UNK
  5. GLIPIZIDE [Concomitant]
     Dosage: UNK
  6. CAPTOPRIL [Concomitant]
     Dosage: UNK
  7. MICARDIS HCT [Concomitant]
     Dosage: UNK

REACTIONS (1)
  - COUGH [None]
